FAERS Safety Report 8000079 (Version 9)
Quarter: 2017Q1

REPORT INFORMATION
  Report Type: Spontaneous
  Country: US (occurrence: US)
  Receive Date: 20110621
  Receipt Date: 20170124
  Transmission Date: 20170429
  Serious: Yes (Hospitalization, Other)
  Sender: FDA-Public Use
  Company Number: US-009507513-1106USA02217

PATIENT
  Sex: Female
  Weight: 56.7 kg

DRUGS (9)
  1. FOSAMAX [Suspect]
     Active Substance: ALENDRONATE SODIUM
     Dosage: 70 MG, QW
     Route: 048
     Dates: start: 20020131, end: 2010
  2. ALENDRONATE SODIUM. [Suspect]
     Active Substance: ALENDRONATE SODIUM
     Indication: OSTEOPOROSIS
     Dosage: 70 MG, QW
     Route: 048
     Dates: start: 20090826, end: 20100305
  3. ALENDRONATE SODIUM. [Suspect]
     Active Substance: ALENDRONATE SODIUM
     Indication: OSTEOPENIA
  4. EVISTA [Suspect]
     Active Substance: RALOXIFENE HYDROCHLORIDE
     Indication: BONE DISORDER
     Dosage: UNK
     Route: 065
     Dates: start: 2008
  5. MK-9278 [Concomitant]
     Active Substance: VITAMINS
     Indication: PRODUCT USED FOR UNKNOWN INDICATION
     Route: 065
  6. VITAMIN D [Concomitant]
     Active Substance: CHOLECALCIFEROL
     Indication: PRODUCT USED FOR UNKNOWN INDICATION
     Dosage: UNK
     Route: 065
     Dates: start: 1995
  7. FOSAMAX [Suspect]
     Active Substance: ALENDRONATE SODIUM
     Indication: OSTEOPOROSIS
     Dosage: 10 MG, UNK
     Route: 048
     Dates: start: 200010, end: 20011217
  8. CALCIUM (UNSPECIFIED) [Concomitant]
     Active Substance: CALCIUM
     Indication: PRODUCT USED FOR UNKNOWN INDICATION
     Dosage: UNK
     Route: 065
     Dates: start: 1985
  9. FOSAMAX [Suspect]
     Active Substance: ALENDRONATE SODIUM
     Indication: OSTEOPENIA
     Dosage: UNK
     Route: 048
     Dates: start: 200010, end: 200909

REACTIONS (24)
  - Femur fracture [Unknown]
  - Low turnover osteopathy [Unknown]
  - Lobular breast carcinoma in situ [Unknown]
  - Mitral valve prolapse [Unknown]
  - Rhinitis allergic [Unknown]
  - Fall [Unknown]
  - Procedural vomiting [Recovered/Resolved]
  - Breast mass [Not Recovered/Not Resolved]
  - Breast cyst [Not Recovered/Not Resolved]
  - Breast hyperplasia [Unknown]
  - Chronic obstructive pulmonary disease [Unknown]
  - Sleep apnoea syndrome [Unknown]
  - Nasal injury [Unknown]
  - Fibula fracture [Unknown]
  - Ankle fracture [Unknown]
  - Procedural nausea [Recovered/Resolved]
  - Injury [Unknown]
  - Pulmonary mass [Unknown]
  - Bone cancer [Unknown]
  - Fall [Unknown]
  - Hypercalciuria [Unknown]
  - Fibula fracture [Unknown]
  - Granuloma [Unknown]
  - Lung disorder [Unknown]

NARRATIVE: CASE EVENT DATE: 20030224
